FAERS Safety Report 5200359-1 (Version None)
Quarter: 2007Q1

REPORT INFORMATION
  Report Type: 
  Country: None (occurrence: None)
  Receive Date: 20070105
  Receipt Date: 20061225
  Transmission Date: 20070707
  Serious: Yes (Hospitalization)
  Sender: FDA-Public Use
  Company Number: JP-PFIZER INC-2006155654

PATIENT
  Age: 26 Year
  Sex: Female

DRUGS (4)
  1. ZITHROMAC [Suspect]
     Route: 048
  2. LOXONIN [Concomitant]
     Route: 048
  3. MUCODYNE [Concomitant]
     Route: 048
  4. DRUG, UNSPECIFIED [Concomitant]
     Route: 048

REACTIONS (1)
  - INTENTIONAL OVERDOSE [None]
